FAERS Safety Report 9450247 (Version 4)
Quarter: 2013Q4

REPORT INFORMATION
  Report Type: Report from Study
  Country: US (occurrence: US)
  Receive Date: 20130809
  Receipt Date: 20131004
  Transmission Date: 20140711
  Serious: Yes (Hospitalization, Other)
  Sender: FDA-Public Use
  Company Number: US-PFIZER INC-2013222798

PATIENT
  Age: 21 Year
  Sex: Female
  Weight: 45 kg

DRUGS (7)
  1. PF-02341066 [Suspect]
     Indication: ANAPLASTIC LARGE CELL LYMPHOMA T- AND NULL-CELL TYPES
     Dosage: 280 MG/M2
     Dates: start: 20120831, end: 20130728
  2. PF-02341066 [Suspect]
     Dosage: 300 MG (215 MG/M2/DOSE), 2X/DAY
     Dates: start: 20130806
  3. METHOTREXATE SODIUM [Suspect]
     Indication: ANAPLASTIC LARGE CELL LYMPHOMA T- AND NULL-CELL TYPES
     Dosage: UNK
     Dates: start: 201205, end: 201208
  4. VINCRISTINE [Suspect]
     Indication: ANAPLASTIC LARGE CELL LYMPHOMA T- AND NULL-CELL TYPES
     Dosage: UNK
     Dates: start: 201205, end: 201208
  5. BACTRIM [Suspect]
     Dosage: UNK
  6. DRONABINOL [Concomitant]
     Dosage: UNK
  7. SCOPOLAMINE [Concomitant]
     Dosage: UNK
     Route: 062

REACTIONS (2)
  - Erythema nodosum [Recovered/Resolved]
  - Lymph gland infection [Not Recovered/Not Resolved]
